FAERS Safety Report 16155020 (Version 2)
Quarter: 2019Q2

REPORT INFORMATION
  Report Type: Report from Study
  Country: AU (occurrence: AU)
  Receive Date: 20190403
  Receipt Date: 20190504
  Transmission Date: 20190711
  Serious: Yes (Life-Threatening, Other)
  Sender: FDA-Public Use
  Company Number: PHHY2019AU070860

PATIENT
  Age: 69 Year
  Sex: Female

DRUGS (2)
  1. SANDOSTATIN LAR DEPOT [Suspect]
     Active Substance: OCTREOTIDE ACETATE
     Indication: CARCINOID SYNDROME
     Dosage: 30 MG, QMO (28 DAYS)
     Route: 030
     Dates: start: 201707, end: 201710
  2. SANDOSTATIN LAR DEPOT [Suspect]
     Active Substance: OCTREOTIDE ACETATE
     Indication: NEUROENDOCRINE TUMOUR

REACTIONS (5)
  - Bone marrow toxicity [Unknown]
  - Drug intolerance [Unknown]
  - Pancytopenia [Unknown]
  - Terminal state [Unknown]
  - Diarrhoea [Not Recovered/Not Resolved]

NARRATIVE: CASE EVENT DATE: 201809
